FAERS Safety Report 4596932-4 (Version None)
Quarter: 2005Q1

REPORT INFORMATION
  Report Type: 
  Country: None (occurrence: None)
  Receive Date: 20050228
  Receipt Date: 20041222
  Transmission Date: 20050727
  Serious: Yes (Hospitalization)
  Sender: FDA-Public Use
  Company Number: 2004114282

PATIENT
  Age: 58 Year
  Sex: Male

DRUGS (6)
  1. CELEBREX [Suspect]
     Indication: ARTHRITIS
     Dosage: 200 MG (100 MG, 2 IN 1 D), ORAL
     Route: 048
     Dates: start: 20010101, end: 20030101
  2. CELEBREX [Suspect]
     Indication: INTERVERTEBRAL DISC DISORDER
     Dosage: 200 MG (100 MG, 2 IN 1 D), ORAL
     Route: 048
     Dates: start: 20010101, end: 20030101
  3. VALSARTAN (VALSARTAN) [Concomitant]
  4. FUROSEMIDE [Concomitant]
  5. CARVEDILOL [Concomitant]
  6. DILTIAZEM [Concomitant]

REACTIONS (4)
  - CARDIAC ARREST [None]
  - CARDIAC STRESS TEST ABNORMAL [None]
  - DRUG INEFFECTIVE [None]
  - MYOCARDIAL INFARCTION [None]
